FAERS Safety Report 8044677-0 (Version None)
Quarter: 2012Q1

REPORT INFORMATION
  Report Type: 
  Country: None (occurrence: None)
  Receive Date: 20120113
  Receipt Date: 20120111
  Transmission Date: 20120608
  Serious: Yes (Hospitalization)
  Sender: FDA-Public Use
  Company Number: BR-ABBOTT-12P-020-0892291-00

PATIENT
  Sex: Female
  Weight: 55 kg

DRUGS (5)
  1. HUMIRA [Suspect]
     Indication: CROHN'S DISEASE
     Route: 058
     Dates: start: 20101101
  2. PREDNISONE [Concomitant]
     Indication: CROHN'S DISEASE
     Route: 048
     Dates: start: 20120104
  3. MESALAMINE [Concomitant]
     Indication: CROHN'S DISEASE
     Route: 048
  4. PAROXETINE HYDROCHLORIDE [Concomitant]
     Indication: ANTIDEPRESSANT THERAPY
     Route: 048
  5. LEVONORGESTREL + ETHINYL ESTRADIOL [Concomitant]
     Indication: CONTRACEPTION
     Dosage: 15 MG + 0.03 MG, 1 TABLET DAILY
     Route: 048

REACTIONS (7)
  - VOMITING [None]
  - ANAEMIA [None]
  - INFECTION [None]
  - CROHN'S DISEASE [None]
  - DIARRHOEA HAEMORRHAGIC [None]
  - ASTHENIA [None]
  - INFLAMMATION [None]
